FAERS Safety Report 17914354 (Version 1)
Quarter: 2020Q2

REPORT INFORMATION
  Report Type: Spontaneous
  Country: US (occurrence: US)
  Receive Date: 20200618
  Receipt Date: 20200618
  Transmission Date: 20200714
  Serious: Yes (Other)
  Sender: FDA-Public Use
  Company Number: US-BAYER-2020-112015

PATIENT
  Age: 26 Year
  Sex: Female

DRUGS (1)
  1. SKYLA [Suspect]
     Active Substance: LEVONORGESTREL
     Indication: COMPLICATION OF DEVICE REMOVAL
     Dosage: 14 ?G PER DAY, CONTINUOUSLY
     Route: 015
     Dates: end: 20200609

REACTIONS (2)
  - Complication of device removal [None]
  - Device breakage [Not Recovered/Not Resolved]

NARRATIVE: CASE EVENT DATE: 20200609
